FAERS Safety Report 8232511-5 (Version None)
Quarter: 2012Q1

REPORT INFORMATION
  Report Type: 
  Country: None (occurrence: None)
  Receive Date: 20120323
  Receipt Date: 20120320
  Transmission Date: 20120608
  Serious: Yes (Other)
  Sender: FDA-Public Use
  Company Number: GR-GILEAD-2012-0052050

PATIENT
  Sex: Female

DRUGS (9)
  1. SINTROM [Concomitant]
  2. NOVOMIX                            /01475801/ [Concomitant]
  3. LOPRESSOR [Suspect]
     Dosage: 50 MG, UNK
     Route: 048
  4. IRBESARTAN [Suspect]
     Dosage: 300 MG, UNK
     Route: 048
  5. PLAVIX [Concomitant]
  6. RANOLAZINE [Suspect]
     Indication: ANGINA PECTORIS
     Dosage: 375 MG, QD
     Route: 048
     Dates: start: 20120203, end: 20120213
  7. AMIODARONE HCL [Suspect]
     Dosage: 200 MG, UNK
     Route: 048
  8. SALOSPIR [Concomitant]
  9. GLUCOPHAGE [Concomitant]

REACTIONS (1)
  - TORSADE DE POINTES [None]
